FAERS Safety Report 17517152 (Version 1)
Quarter: 2020Q1

REPORT INFORMATION
  Report Type: Spontaneous
  Country: US (occurrence: US)
  Receive Date: 20200307
  Receipt Date: 20200307
  Transmission Date: 20200409
  Serious: Yes (Hospitalization, Disabling)
  Sender: FDA-Public Use
  Company Number: None

PATIENT
  Age: 7 Year
  Sex: Male
  Weight: 76.5 kg

DRUGS (6)
  1. MONTELUKAST SODIUM 5 MG [Suspect]
     Active Substance: MONTELUKAST SODIUM
     Indication: HYPERSENSITIVITY
     Route: 048
  2. ADDERALL [Concomitant]
     Active Substance: AMPHETAMINE ASPARTATE\AMPHETAMINE SULFATE\DEXTROAMPHETAMINE SACCHARATE\DEXTROAMPHETAMINE SULFATE
  3. ZOLOFT [Concomitant]
     Active Substance: SERTRALINE HYDROCHLORIDE
  4. ADDERALL XR [Concomitant]
     Active Substance: AMPHETAMINE ASPARTATE\AMPHETAMINE SULFATE\DEXTROAMPHETAMINE SACCHARATE\DEXTROAMPHETAMINE SULFATE
  5. L-METHYLFOLATE [Concomitant]
     Active Substance: LEVOMEFOLIC ACID
  6. LITHIUM. [Concomitant]
     Active Substance: LITHIUM

REACTIONS (6)
  - Affective disorder [None]
  - Attention deficit/hyperactivity disorder [None]
  - Aggression [None]
  - Nightmare [None]
  - Anxiety [None]
  - Somnambulism [None]

NARRATIVE: CASE EVENT DATE: 20150101
